FAERS Safety Report 11909711 (Version 1)
Quarter: 2016Q1

REPORT INFORMATION
  Report Type: Spontaneous
  Country: US (occurrence: None)
  Receive Date: 20160111
  Receipt Date: 20160111
  Transmission Date: 20160526
  Serious: Yes (Hospitalization, Disabling)
  Sender: FDA-Public Use
  Company Number: None

PATIENT
  Age: 77 Year
  Sex: Male
  Weight: 68.04 kg

DRUGS (13)
  1. ECOTRIN [Concomitant]
     Active Substance: ASPIRIN
  2. NORVASC [Concomitant]
     Active Substance: AMLODIPINE BESYLATE
  3. RESTORIL [Concomitant]
     Active Substance: TEMAZEPAM
  4. SINEMET [Concomitant]
     Active Substance: CARBIDOPA\LEVODOPA
  5. MILK OF MAGNESIA [Concomitant]
     Active Substance: MAGNESIUM HYDROXIDE
  6. GLYCERYL TRINITRATE [Concomitant]
     Active Substance: NITROGLYCERIN
  7. NITROGLYCERIN. [Concomitant]
     Active Substance: NITROGLYCERIN
  8. PROPRANOLOL [Concomitant]
     Active Substance: PROPRANOLOL\PROPRANOLOL HYDROCHLORIDE
  9. VITAMIN D [Concomitant]
     Active Substance: CHOLECALCIFEROL
  10. MECLIZINE [Concomitant]
     Active Substance: MECLIZINE HYDROCHLORIDE
  11. RYTARY [Suspect]
     Active Substance: CARBIDOPA\LEVODOPA
     Indication: PARKINSON^S DISEASE
     Route: 048
     Dates: start: 20151026, end: 20151119
  12. PROTONIX [Concomitant]
     Active Substance: PANTOPRAZOLE SODIUM
  13. FLECAINIDE [Concomitant]
     Active Substance: FLECAINIDE

REACTIONS (5)
  - Somnolence [None]
  - Cerebral haemorrhage [None]
  - Abnormal behaviour [None]
  - Hallucination [None]
  - Brain injury [None]

NARRATIVE: CASE EVENT DATE: 20151128
